FAERS Safety Report 4944310-8 (Version None)
Quarter: 2006Q1

REPORT INFORMATION
  Report Type: 
  Country: None (occurrence: None)
  Receive Date: 20060309
  Receipt Date: 20060224
  Transmission Date: 20060701
  Serious: Yes (Hospitalization)
  Sender: FDA-Public Use
  Company Number: 2005BI022280

PATIENT
  Age: 50 Year
  Sex: Female

DRUGS (8)
  1. AVONEX [Suspect]
     Indication: MULTIPLE SCLEROSIS
     Dosage: 30 UG;QW;IM
     Route: 030
     Dates: start: 20050201
  2. ALEVE [Concomitant]
  3. SUDAFED 12 HOUR [Concomitant]
  4. MVT [Concomitant]
  5. VITAMIN B COMPLEX CAP [Concomitant]
  6. CALCIUM GLUCONATE [Concomitant]
  7. PEPCID [Concomitant]
  8. DOCUSATE [Concomitant]

REACTIONS (1)
  - BREAST CANCER FEMALE [None]
